FAERS Safety Report 21178772 (Version 1)
Quarter: 2022Q3

REPORT INFORMATION
  Report Type: Report from Study
  Country: US (occurrence: US)
  Receive Date: 20220805
  Receipt Date: 20220805
  Transmission Date: 20221027
  Serious: Yes (Other)
  Sender: FDA-Public Use
  Company Number: US-JAZZ-2022-US-012113

PATIENT
  Sex: Male

DRUGS (5)
  1. XYREM [Suspect]
     Active Substance: SODIUM OXYBATE
     Indication: Cataplexy
     Dosage: 2.25 GRAM, BID
     Route: 048
     Dates: start: 202203
  2. XYREM [Suspect]
     Active Substance: SODIUM OXYBATE
     Indication: Narcolepsy
  3. XYREM [Suspect]
     Active Substance: SODIUM OXYBATE
     Indication: Somnolence
  4. BUSPIRONE HCL [Concomitant]
     Active Substance: BUSPIRONE HYDROCHLORIDE
     Indication: Product used for unknown indication
     Dosage: 0000
     Dates: start: 20220425
  5. DICLOFENAC POTASICO [Concomitant]
     Indication: Product used for unknown indication
     Dosage: 0000
     Dates: start: 20220501

REACTIONS (13)
  - Hepatitis C [Unknown]
  - Joint swelling [Unknown]
  - Peripheral swelling [Unknown]
  - Tachycardia [Recovered/Resolved]
  - Attention deficit hyperactivity disorder [Unknown]
  - Arthritis [Unknown]
  - Fall [Unknown]
  - Arthralgia [Unknown]
  - Fluid retention [Recovered/Resolved]
  - Hypertension [Recovered/Resolved]
  - Anxiety [Recovered/Resolved]
  - Muscle spasms [Unknown]
  - Neuralgia [Unknown]
